FAERS Safety Report 18585866 (Version 1)
Quarter: 2020Q4

REPORT INFORMATION
  Report Type: Spontaneous
  Country: AU (occurrence: AU)
  Receive Date: 20201207
  Receipt Date: 20201207
  Transmission Date: 20210114
  Serious: Yes (Other)
  Sender: FDA-Public Use
  Company Number: AU-MYLANLABS-2020M1033003

PATIENT
  Age: 51 Year
  Sex: Female

DRUGS (1)
  1. CLOZARIL [Suspect]
     Active Substance: CLOZAPINE
     Indication: SCHIZOPHRENIA
     Dosage: 200 MILLIGRAM
     Route: 048
     Dates: start: 20191115

REACTIONS (8)
  - Neutrophil count increased [Recovered/Resolved]
  - Haemoglobin increased [Unknown]
  - Drug level increased [Unknown]
  - Thrombocytopenia [Recovering/Resolving]
  - Red blood cell count increased [Not Recovered/Not Resolved]
  - White blood cell count increased [Recovered/Resolved]
  - Lymphocyte count increased [Recovered/Resolved]
  - Haematocrit increased [Not Recovered/Not Resolved]

NARRATIVE: CASE EVENT DATE: 20200219
